FAERS Safety Report 8988508 (Version 1)
Quarter: 2012Q4

REPORT INFORMATION
  Report Type: Spontaneous
  Country: US (occurrence: None)
  Receive Date: 20121224
  Receipt Date: 20121224
  Transmission Date: 20130627
  Serious: Yes (Other)
  Sender: FDA-Public Use
  Company Number: None

PATIENT
  Age: 62 Year
  Sex: Male
  Weight: 81.65 kg

DRUGS (1)
  1. TIKOSYN [Suspect]
     Indication: AFIB
     Dosage: 500MCG
     Dates: start: 20120902, end: 20120920

REACTIONS (6)
  - Dizziness [None]
  - Dyspnoea exertional [None]
  - Abdominal pain upper [None]
  - Discomfort [None]
  - Syncope [None]
  - Heart rate decreased [None]
